FAERS Safety Report 9476044 (Version 3)
Quarter: 2013Q3

REPORT INFORMATION
  Report Type: Spontaneous
  Country: DE (occurrence: DE)
  Receive Date: 20130826
  Receipt Date: 20130925
  Transmission Date: 20140515
  Serious: Yes (Hospitalization)
  Sender: FDA-Public Use
  Company Number: DE-NOVOPROD-385534

PATIENT
  Age: 8 Year
  Sex: Female
  Weight: 25 kg

DRUGS (3)
  1. NORDITROPIN FLEXPRO 6.7 MG/ML [Suspect]
     Indication: SILVER-RUSSELL SYNDROME
     Dosage: 0.5 MG, QD
     Route: 058
     Dates: start: 201104
  2. NORDITROPIN FLEXPRO 6.7 MG/ML [Suspect]
     Indication: MICROSOMIA
  3. NORDITROPIN FLEXPRO 6.7 MG/ML [Suspect]
     Indication: SMALL FOR DATES BABY

REACTIONS (3)
  - Hepatitis [Not Recovered/Not Resolved]
  - Rectal tenesmus [Not Recovered/Not Resolved]
  - Cholelithiasis [Not Recovered/Not Resolved]
